FAERS Safety Report 25052718 (Version 2)
Quarter: 2025Q2

REPORT INFORMATION
  Report Type: Report from Study
  Country: US (occurrence: US)
  Receive Date: 20250307
  Receipt Date: 20250617
  Transmission Date: 20250716
  Serious: Yes (Other)
  Sender: AMGEN
  Company Number: US-AMGEN-USASL2025040311

PATIENT
  Age: 74 Year
  Sex: Female

DRUGS (24)
  1. REPATHA [Suspect]
     Active Substance: EVOLOCUMAB
     Indication: Type V hyperlipidaemia
     Dosage: 140 MILLIGRAM, Q2WK
     Route: 065
  2. REPATHA [Suspect]
     Active Substance: EVOLOCUMAB
  3. PROLIA [Suspect]
     Active Substance: DENOSUMAB
     Indication: Product used for unknown indication
     Route: 058
     Dates: end: 20241030
  4. PRALUENT [Concomitant]
     Active Substance: ALIROCUMAB
     Dosage: 75 MILLIGRAM PER MILLILITRE, Q2WK (INJECT 1 ML (75 MG TOTAL) UNDER THE SKIN EVERY 14 DAYS)
     Route: 058
     Dates: end: 20250224
  5. VITAMIN C [Concomitant]
     Active Substance: ASCORBIC ACID
     Dosage: 1000 MILLIGRAM, QD
     Route: 048
     Dates: start: 20201117
  6. ASPIRIN [Concomitant]
     Active Substance: ASPIRIN
     Dosage: 81 MILLIGRAM, QD
     Route: 048
     Dates: start: 20201117
  7. BACILLUS COAGULANS [Concomitant]
     Active Substance: BACILLUS COAGULANS
     Dosage: 1 DOSAGE FORM, QD (1 CAP, PO, DAILY, EACH, O REFILLS
     Route: 048
     Dates: start: 20201117
  8. INULIN [Concomitant]
     Active Substance: INULIN
     Dosage: UNK, QD (1 CAP, PO, DAILY, EACH, O REFILLS)
     Route: 048
  9. VITAMIN B COMPLEX [Concomitant]
     Active Substance: CYANOCOBALAMIN\DEXPANTHENOL\NIACINAMIDE\PYRIDOXINE HYDROCHLORIDE\RIBOFLAVIN 5^-PHOSPHATE SODIUM\THIA
     Dosage: UNK UNK, QD (1 TAB, PO, DAILY, EACH, O REFILLS)
     Route: 048
     Dates: start: 20201117
  10. VALISONE [Concomitant]
     Active Substance: BETAMETHASONE VALERATE
  11. VITAMIN D3 [Concomitant]
     Active Substance: CHOLECALCIFEROL
     Dosage: 50 MICROGRAM, QD
     Route: 048
     Dates: start: 20201117
  12. EFINACONAZOLE [Concomitant]
     Active Substance: EFINACONAZOLE
     Route: 061
  13. ZETIA [Concomitant]
     Active Substance: EZETIMIBE
     Dosage: 10 MILLIGRAM, QD
     Route: 048
     Dates: start: 20201117, end: 20250206
  14. BREO ELLIPTA [Concomitant]
     Active Substance: FLUTICASONE FUROATE\VILANTEROL TRIFENATATE
     Dates: start: 20240717, end: 20241030
  15. BREO ELLIPTA [Concomitant]
     Active Substance: FLUTICASONE FUROATE\VILANTEROL TRIFENATATE
     Dates: start: 20240723
  16. ATROVENT [Concomitant]
     Active Substance: IPRATROPIUM BROMIDE
     Route: 045
  17. MAGNESIUM CHLORIDE [Concomitant]
     Active Substance: MAGNESIUM CHLORIDE
     Dosage: 64 MILLIGRAM, QD
     Route: 048
     Dates: start: 20201117
  18. LIALDA [Concomitant]
     Active Substance: MESALAMINE
     Route: 048
  19. TOPROL XL [Concomitant]
     Active Substance: METOPROLOL SUCCINATE
     Dosage: 100 MILLIGRAM, QD (TAKE 1 TABLET (100 MG TOTAL) BY MOUTH 1 (ONE) TIME EACH DAY. DO NOT CRUSH OR CHEW
     Route: 048
     Dates: start: 20230330, end: 20250206
  20. BACTROBAN [Concomitant]
     Active Substance: MUPIROCIN CALCIUM
  21. LOVAZA [Concomitant]
     Active Substance: OMEGA-3-ACID ETHYL ESTERS
     Route: 065
     Dates: start: 20201117
  22. KENALOG [Concomitant]
     Active Substance: TRIAMCINOLONE ACETONIDE
  23. VITAMIN E [Concomitant]
     Active Substance: .ALPHA.-TOCOPHEROL
     Route: 065
     Dates: start: 20201117
  24. ZINC GLUCONATE [Concomitant]
     Active Substance: ZINC GLUCONATE
     Dates: start: 20201117

REACTIONS (7)
  - Respiratory distress [Unknown]
  - Subclavian artery occlusion [Unknown]
  - Carotid endarterectomy [Unknown]
  - Oedema peripheral [Unknown]
  - High density lipoprotein decreased [Unknown]
  - Blood triglycerides increased [Unknown]
  - Blood glucose increased [Unknown]

NARRATIVE: CASE EVENT DATE: 20230916
